FAERS Safety Report 4462017-0 (Version None)
Quarter: 2004Q3

REPORT INFORMATION
  Report Type: 
  Country: None (occurrence: None)
  Receive Date: 20040923
  Receipt Date: 20040908
  Transmission Date: 20050211
  Serious: Yes (Hospitalization)
  Sender: FDA-Public Use
  Company Number: 2004-00475

PATIENT
  Sex: Male

DRUGS (1)
  1. VELCADE (BORTEZOMIB) INJECTION, 1.3 MG [Suspect]
     Indication: MULTIPLE MYELOMA
     Dosage: 1.30 MG

REACTIONS (4)
  - DEHYDRATION [None]
  - DIARRHOEA [None]
  - TACHYARRHYTHMIA [None]
  - VOMITING [None]
